FAERS Safety Report 19480209 (Version 1)
Quarter: 2021Q3

REPORT INFORMATION
  Report Type: Spontaneous
  Country: PL (occurrence: PL)
  Receive Date: 20210701
  Receipt Date: 20210701
  Transmission Date: 20211014
  Serious: Yes (Other)
  Sender: FDA-Public Use
  Company Number: PL-TEVA-2021-PL-1927443

PATIENT
  Age: 30 Year
  Sex: Male
  Weight: 90.8 kg

DRUGS (1)
  1. MTX (METOTREKSAT) [Suspect]
     Active Substance: METHOTREXATE
     Indication: PSORIASIS
     Dosage: 15 MG/WEEK
     Dates: start: 20120831, end: 20120901

REACTIONS (2)
  - Psychotic symptom [Recovered/Resolved]
  - Schizophrenia [Recovered/Resolved]

NARRATIVE: CASE EVENT DATE: 20120905
